FAERS Safety Report 5297864-9 (Version None)
Quarter: 2007Q2

REPORT INFORMATION
  Report Type: 
  Country: None (occurrence: None)
  Receive Date: 20070416
  Receipt Date: 20070411
  Transmission Date: 20071010
  Serious: Yes (Death, Hospitalization)
  Sender: FDA-Public Use
  Company Number: PHHO2007DE06455

PATIENT
  Sex: Female

DRUGS (4)
  1. SANDIMMUNE [Suspect]
     Indication: RENAL TRANSPLANT
     Route: 048
     Dates: start: 20070314
  2. ATGAM [Suspect]
     Indication: RENAL TRANSPLANT
     Dosage: UNK, UNK
     Route: 042
     Dates: start: 20070314
  3. MYCOPHENOLATE MOFETIL [Suspect]
     Indication: RENAL TRANSPLANT
     Dates: start: 20070314
  4. STEROIDS NOS [Suspect]
     Indication: RENAL TRANSPLANT
     Dates: start: 20070314

REACTIONS (6)
  - CARDIAC FAILURE [None]
  - CHILLS [None]
  - ESCHERICHIA SEPSIS [None]
  - PYREXIA [None]
  - URINARY TRACT INFECTION [None]
  - WOUND SECRETION [None]
